FAERS Safety Report 5160065-9 (Version None)
Quarter: 2006Q4

REPORT INFORMATION
  Report Type: 
  Country: None (occurrence: None)
  Receive Date: 20061129
  Receipt Date: 20060831
  Transmission Date: 20070319
  Serious: No
  Sender: FDA-Public Use
  Company Number: US-GLAXOSMITHKLINE-A0618786A

PATIENT
  Age: 49 Year
  Sex: Female

DRUGS (6)
  1. WELLBUTRIN SR [Suspect]
     Indication: DEPRESSION
     Dosage: 300MG PER DAY
     Route: 048
  2. SYNTHROID [Suspect]
  3. SYNTHROID [Concomitant]
  4. ABILIFY [Concomitant]
  5. ZANTAC [Concomitant]
  6. LITHIUM CARBONATE [Concomitant]

REACTIONS (1)
  - DIARRHOEA [None]
